FAERS Safety Report 18206839 (Version 1)
Quarter: 2020Q3

REPORT INFORMATION
  Report Type: Spontaneous
  Country: FR (occurrence: FR)
  Receive Date: 20200828
  Receipt Date: 20200828
  Transmission Date: 20201103
  Serious: Yes (Other)
  Sender: FDA-Public Use
  Company Number: FR-ACCORD-197546

PATIENT
  Age: 48 Year
  Sex: Female
  Weight: 39 kg

DRUGS (7)
  1. SERTRALINE [Concomitant]
     Active Substance: SERTRALINE HYDROCHLORIDE
  2. NICOPATCHLIB [Concomitant]
     Active Substance: NICOTINE
     Dosage: STRENGTH:  14 MG / 24 HOURS
  3. CERIS [Concomitant]
     Active Substance: TROSPIUM CHLORIDE
     Dosage: STRENGTH: 20 MG
  4. TETMODIS [Concomitant]
     Active Substance: TETRABENAZINE
     Dosage: STRENGTH: 25 MG, SCORED TABLET
  5. BUPRENORPHINE. [Concomitant]
     Active Substance: BUPRENORPHINE
  6. CLOZAPINE. [Suspect]
     Active Substance: CLOZAPINE
     Indication: SCHIZOPHRENIA
     Route: 048
  7. DIAZEPAM. [Concomitant]
     Active Substance: DIAZEPAM

REACTIONS (1)
  - Hypogammaglobulinaemia [Not Recovered/Not Resolved]

NARRATIVE: CASE EVENT DATE: 20200331
